FAERS Safety Report 18364490 (Version 1)
Quarter: 2020Q4

REPORT INFORMATION
  Report Type: Spontaneous
  Country: US (occurrence: US)
  Receive Date: 20201008
  Receipt Date: 20201008
  Transmission Date: 20210114
  Serious: No
  Sender: FDA-Public Use
  Company Number: None

PATIENT
  Age: 40 Year
  Sex: Female

DRUGS (2)
  1. CEFEPIME [Suspect]
     Active Substance: CEFEPIME HYDROCHLORIDE
     Indication: CYSTIC FIBROSIS
     Route: 042
     Dates: start: 20200928, end: 20200929
  2. AZTREONAM. [Concomitant]
     Active Substance: AZTREONAM

REACTIONS (1)
  - Rash [None]

NARRATIVE: CASE EVENT DATE: 20200928
